FAERS Safety Report 8321308-3 (Version None)
Quarter: 2012Q2

REPORT INFORMATION
  Report Type: 
  Country: None (occurrence: None)
  Receive Date: 20120430
  Receipt Date: 20120423
  Transmission Date: 20120825
  Serious: Yes (Hospitalization, Other)
  Sender: FDA-Public Use
  Company Number: US-JNJFOC-20110808245

PATIENT
  Sex: Female
  Weight: 53.98 kg

DRUGS (20)
  1. PHOSLO [Concomitant]
     Dosage: 2 CAPS WITH MEALS
     Route: 065
  2. DOXORUBICIN HCL [Suspect]
     Indication: MULTIPLE MYELOMA
     Route: 042
     Dates: start: 20110418
  3. VELCADE [Suspect]
     Indication: MULTIPLE MYELOMA
     Route: 042
     Dates: start: 20110620
  4. NIFEDIPINE [Concomitant]
     Route: 065
  5. DOXORUBICIN HCL [Suspect]
     Route: 042
     Dates: start: 20110618
  6. FLUCONAZOLE [Concomitant]
     Route: 048
  7. VELCADE [Suspect]
     Route: 042
     Dates: start: 20110415
  8. ACYCLOVIR [Concomitant]
     Route: 048
  9. DOXORUBICIN HCL [Suspect]
     Route: 042
     Dates: start: 20110415
  10. DOXORUBICIN HCL [Suspect]
     Dosage: NDC NUMBER= 59676-960-02
     Route: 042
     Dates: start: 20110620
  11. ALOXI [Concomitant]
     Route: 042
  12. VITAMIN D [Concomitant]
     Route: 065
  13. TOPROL-XL [Concomitant]
     Route: 065
  14. ACYCLOVIR [Concomitant]
     Route: 048
  15. VELCADE [Suspect]
     Route: 042
     Dates: start: 20110509
  16. DEXAMETHASONE [Suspect]
     Indication: MULTIPLE MYELOMA
     Route: 048
     Dates: start: 20110415
  17. BACTRIM [Concomitant]
     Dosage: ON MONDAY/ WEDNESDAY/FRIDAY
     Route: 048
  18. SENNA S [Concomitant]
     Indication: CONSTIPATION
     Route: 065
  19. FISH OIL [Concomitant]
     Route: 065
  20. COMPAZINE [Concomitant]
     Indication: NAUSEA
     Route: 048

REACTIONS (5)
  - DUODENAL ULCER PERFORATION [None]
  - URINARY TRACT INFECTION [None]
  - FATIGUE [None]
  - INFECTIOUS PERITONITIS [None]
  - ASTHENIA [None]
